FAERS Safety Report 9076166 (Version 1)
Quarter: 2013Q1

REPORT INFORMATION
  Report Type: Report from Study
  Country: US (occurrence: US)
  Receive Date: 20130129
  Receipt Date: 20130129
  Transmission Date: 20140127
  Serious: No
  Sender: FDA-Public Use
  Company Number: US-ABBOTT-12P-163-0933768-00

PATIENT
  Age: 42 None
  Sex: Female

DRUGS (3)
  1. HUMIRA 40 MG/ 0.8 ML PRE-FILLED SYRINGE [Suspect]
     Indication: PSORIATIC ARTHROPATHY
     Dosage: 2 SYRINGES DAY 1
     Route: 058
     Dates: start: 201204
  2. HUMIRA 40 MG/ 0.8 ML PRE-FILLED SYRINGE [Suspect]
     Dosage: 1 SYRINGE DAY 8
     Route: 058
  3. HUMIRA 40 MG/ 0.8 ML PRE-FILLED SYRINGE [Suspect]
     Route: 058

REACTIONS (6)
  - Fatigue [Unknown]
  - Eye irritation [Unknown]
  - Eye swelling [Unknown]
  - Conjunctivitis infective [Unknown]
  - Headache [Unknown]
  - Weight increased [Unknown]
